FAERS Safety Report 20590748 (Version 1)
Quarter: 2022Q1

REPORT INFORMATION
  Report Type: Spontaneous
  Country: US (occurrence: None)
  Receive Date: 20220314
  Receipt Date: 20220314
  Transmission Date: 20220424
  Serious: Yes (Disabling)
  Sender: FDA-Public Use
  Company Number: None

PATIENT
  Age: 18 Year

DRUGS (1)
  1. .DELTA.8-TETRAHYDROCANNABINOL\HERBALS [Suspect]
     Active Substance: .DELTA.8-TETRAHYDROCANNABINOL\HERBALS
     Dosage: OTHER QUANTITY : 10 GUMMIES;?
     Route: 048

REACTIONS (7)
  - Feeling hot [None]
  - Malaise [None]
  - Tremor [None]
  - Mydriasis [None]
  - Vomiting [None]
  - Paranoia [None]
  - Fatigue [None]

NARRATIVE: CASE EVENT DATE: 20220314
